FAERS Safety Report 8583111-9 (Version None)
Quarter: 2012Q2

REPORT INFORMATION
  Report Type: 
  Country: None (occurrence: None)
  Receive Date: 20120423
  Receipt Date: 20090827
  Transmission Date: 20120825
  Serious: Yes (Other)
  Sender: FDA-Public Use
  Company Number: PHEH2009US09999

PATIENT
  Sex: Male

DRUGS (1)
  1. EXJADE [Suspect]
     Dates: start: 20060301

REACTIONS (1)
  - DEAFNESS [None]
